FAERS Safety Report 6641653-7 (Version None)
Quarter: 2010Q1

REPORT INFORMATION
  Report Type: 
  Country: None (occurrence: None)
  Receive Date: 20100316
  Receipt Date: 20100224
  Transmission Date: 20100710
  Serious: Yes (Hospitalization)
  Sender: FDA-Public Use
  Company Number: 54973 AE #237

PATIENT
  Age: 7 Month
  Sex: Male
  Weight: 8.6183 kg

DRUGS (2)
  1. TEETHING TABLETS [Suspect]
     Indication: PAIN
     Dosage: 2 TABLET P.O.
     Route: 048
  2. TEETHING TABLETS [Suspect]
     Indication: TEETHING
     Dosage: 2 TABLET P.O.
     Route: 048

REACTIONS (1)
  - CHOKING [None]
